FAERS Safety Report 4573048-4 (Version None)
Quarter: 2005Q1

REPORT INFORMATION
  Report Type: 
  Country: None (occurrence: None)
  Receive Date: 20050204
  Receipt Date: 20050119
  Transmission Date: 20050727
  Serious: Yes (Other)
  Sender: FDA-Public Use
  Company Number: 8008557

PATIENT
  Age: 40 Year
  Sex: Female

DRUGS (2)
  1. KEPPRA [Suspect]
     Indication: PARTIAL SEIZURES
  2. CARBAMAZEPINE [Suspect]
     Indication: PARTIAL SEIZURES

REACTIONS (2)
  - BRADYCARDIA [None]
  - SINUS TACHYCARDIA [None]
